FAERS Safety Report 18054424 (Version 8)
Quarter: 2021Q3

REPORT INFORMATION
  Report Type: Report from Study
  Country: US (occurrence: US)
  Receive Date: 20200722
  Receipt Date: 20210907
  Transmission Date: 20211014
  Serious: Yes (Other)
  Sender: FDA-Public Use
  Company Number: US-SHIRE-US202023513

PATIENT
  Age: 21 Year
  Sex: Male

DRUGS (2)
  1. RECOMBINATE [Suspect]
     Active Substance: ANTIHEMOPHILIC FACTOR, HUMAN RECOMBINANT
     Indication: PRODUCT USED FOR UNKNOWN INDICATION
     Dosage: 6000 INTERNATIONAL UNIT
     Route: 042
  2. RECOMBINATE [Suspect]
     Active Substance: ANTIHEMOPHILIC FACTOR, HUMAN RECOMBINANT
     Dosage: 3850 INTERNATIONAL UNIT
     Route: 042

REACTIONS (8)
  - Gastric haemorrhage [Recovered/Resolved]
  - Limb discomfort [Recovered/Resolved]
  - Haemarthrosis [Recovered/Resolved]
  - Neck pain [Recovered/Resolved]
  - Muscle haemorrhage [Unknown]
  - Peripheral swelling [Recovered/Resolved]
  - Ligament sprain [Recovered/Resolved]
  - Musculoskeletal stiffness [Recovered/Resolved]

NARRATIVE: CASE EVENT DATE: 20200517
